FAERS Safety Report 5402832-X (Version None)
Quarter: 2007Q3

REPORT INFORMATION
  Report Type: 
  Country: None (occurrence: None)
  Receive Date: 20070730
  Receipt Date: 20070717
  Transmission Date: 20080115
  Serious: Yes (Hospitalization)
  Sender: FDA-Public Use
  Company Number: 2007AL002814

PATIENT
  Age: 74 Year
  Sex: Male

DRUGS (1)
  1. CARBAMAZEPINE [Suspect]
     Dosage: 600 MG; QD

REACTIONS (4)
  - BIPOLAR I DISORDER [None]
  - CONDITION AGGRAVATED [None]
  - MAJOR DEPRESSION [None]
  - MANIA [None]
